FAERS Safety Report 7494858-X (Version None)
Quarter: 2011Q2

REPORT INFORMATION
  Report Type: 
  Country: None (occurrence: None)
  Receive Date: 20110520
  Receipt Date: 20110516
  Transmission Date: 20111010
  Serious: Yes (Hospitalization, Other)
  Sender: FDA-Public Use
  Company Number: BR-MEDIMMUNE-MEDI-0011449

PATIENT
  Sex: Female
  Weight: 8.12 kg

DRUGS (4)
  1. FUROSEMIDE [Concomitant]
     Indication: CARDIAC DISORDER
     Route: 048
  2. CAPTOPRIL [Concomitant]
     Indication: CARDIAC DISORDER
     Route: 048
  3. DIGOXIN [Concomitant]
     Indication: CARDIAC DISORDER
     Route: 048
  4. SYNAGIS [Suspect]
     Indication: CARDIAC DISORDER
     Route: 030
     Dates: start: 20100517, end: 20100517

REACTIONS (2)
  - PNEUMONIA [None]
  - COMA [None]
